FAERS Safety Report 8518626 (Version 3)
Quarter: 2014Q1

REPORT INFORMATION
  Report Type: Spontaneous
  Country: US (occurrence: US)
  Receive Date: 20120417
  Receipt Date: 20140204
  Transmission Date: 20141002
  Serious: No
  Sender: FDA-Public Use
  Company Number: US-ASTRAZENECA-2012SE05279

PATIENT
  Age: 57 Year
  Sex: Male
  Weight: 96.2 kg

DRUGS (6)
  1. NEXIUM [Suspect]
     Indication: GASTROOESOPHAGEAL REFLUX DISEASE
     Route: 048
  2. NEXIUM [Suspect]
     Indication: GASTROOESOPHAGEAL REFLUX DISEASE
     Route: 048
  3. LISINOPRIL [Suspect]
     Indication: BLOOD PRESSURE ABNORMAL
     Route: 048
  4. PRILOSEC OTC [Suspect]
     Route: 048
  5. PREVACID [Concomitant]
  6. ZEGRID OTC [Concomitant]

REACTIONS (7)
  - Hernia [Unknown]
  - Adverse event [Unknown]
  - Gastric ulcer [Unknown]
  - Weight decreased [Unknown]
  - Gastrooesophageal reflux disease [Unknown]
  - Drug ineffective [Unknown]
  - Drug dose omission [Unknown]
